FAERS Safety Report 7386791-9 (Version None)
Quarter: 2011Q1

REPORT INFORMATION
  Report Type: 
  Country: None (occurrence: None)
  Receive Date: 20110331
  Receipt Date: 20110329
  Transmission Date: 20110831
  Serious: Yes (Hospitalization, Other)
  Sender: FDA-Public Use
  Company Number: PT-BAYER-2011-027217

PATIENT
  Age: 77 Year
  Sex: Male

DRUGS (8)
  1. NEXAVAR [Suspect]
     Indication: PRODUCT USED FOR UNKNOWN INDICATION
     Dosage: 200 MG
     Route: 048
     Dates: start: 20090101
  2. ALLOPURINOL [Concomitant]
     Dosage: 100 MG, QD
     Route: 048
  3. VIREAD [Suspect]
     Indication: HEPATITIS B
     Dosage: 245 MG
     Route: 048
     Dates: start: 20090101, end: 20100927
  4. LEVOTHYROXINE SODIUM [Concomitant]
     Dosage: 0.25 MCG
     Route: 048
  5. SIMVASTATIN [Concomitant]
     Dosage: 20 MG, QD
     Route: 048
  6. PERINDOPRIL ERBUMINE [Concomitant]
     Dosage: 4 MG
     Route: 048
  7. OMEPRAZOLE [Concomitant]
     Dosage: 20 MG
     Route: 048
  8. SERTRALINE HYDROCHLORIDE [Concomitant]
     Dosage: 50 MG, QD
     Route: 048

REACTIONS (2)
  - CEREBROVASCULAR ACCIDENT [None]
  - RENAL FAILURE [None]
